FAERS Safety Report 10230230 (Version 1)
Quarter: 2014Q2

REPORT INFORMATION
  Report Type: Spontaneous
  Country: US (occurrence: US)
  Receive Date: 20140611
  Receipt Date: 20140611
  Transmission Date: 20141212
  Serious: Yes (Other)
  Sender: FDA-Public Use
  Company Number: US-PFIZER INC-2014154880

PATIENT
  Age: 25 Year
  Sex: Male

DRUGS (2)
  1. TESTOSTERONE CIPIONATE [Suspect]
     Indication: MUSCLE BUILDING THERAPY
     Dosage: UNK
  2. TRENBOLONE [Suspect]
     Indication: MUSCLE BUILDING THERAPY
     Dosage: UNK

REACTIONS (2)
  - Drug abuse [Unknown]
  - Ischaemic stroke [Recovering/Resolving]
